FAERS Safety Report 5699641-3 (Version None)
Quarter: 2008Q2

REPORT INFORMATION
  Report Type: 
  Country: None (occurrence: None)
  Receive Date: 20080410
  Receipt Date: 20080401
  Transmission Date: 20081010
  Serious: Yes (Other)
  Sender: FDA-Public Use
  Company Number: PHHY2008BR04516

PATIENT
  Age: 68 Year
  Sex: Male
  Weight: 50 kg

DRUGS (9)
  1. DIGOBAL [Concomitant]
     Dosage: 0.125 MG, QD
     Route: 048
  2. ALDACTONE [Concomitant]
     Indication: HYPERTENSION
     Dosage: 50 MG, QD
     Route: 048
  3. SECOTEX [Concomitant]
     Dosage: 0.4 MG, QD
     Route: 048
  4. CITALOPRAM HYDROBROMIDE [Concomitant]
     Indication: ANXIETY
     Dosage: 20 MG, QD
     Route: 048
  5. CLOPIDOGREL [Concomitant]
     Dosage: 75 MG, QD
     Route: 048
  6. OMEPRAZOLE [Concomitant]
     Indication: PROPHYLAXIS
     Dosage: 40 MG, QD
     Route: 048
  7. AMOXICILLIN + CLAVULANATE POTASSIUM [Concomitant]
     Dosage: UNK, Q8H
     Route: 048
  8. EXFORGE [Suspect]
     Indication: HYPERTENSION
     Dosage: 1 TABLET/DAY
     Route: 048
  9. HIDRION [Concomitant]
     Dosage: 40 MG, QD
     Route: 048

REACTIONS (9)
  - ABDOMINAL PAIN UPPER [None]
  - ASTHENIA [None]
  - DEHYDRATION [None]
  - DIARRHOEA [None]
  - HYPOTENSION [None]
  - HYPOTHERMIA [None]
  - INFECTION [None]
  - PLATELET DISORDER [None]
  - WHITE BLOOD CELL DISORDER [None]
